FAERS Safety Report 7933989-4 (Version None)
Quarter: 2011Q4

REPORT INFORMATION
  Report Type: 
  Country: None (occurrence: None)
  Receive Date: 20111122
  Receipt Date: 20111117
  Transmission Date: 20120403
  Serious: Yes (Other)
  Sender: FDA-Public Use
  Company Number: PHHY2011BR101361

PATIENT
  Age: 78 Year
  Sex: Female

DRUGS (3)
  1. ONBREZ [Suspect]
     Indication: BRONCHOPNEUMONIA
     Dosage: 1 DF, IN THE MORNING
  2. ALENIA [Concomitant]
  3. SPIRIVA [Concomitant]

REACTIONS (2)
  - APHTHOUS STOMATITIS [None]
  - SWOLLEN TONGUE [None]
